FAERS Safety Report 23131343 (Version 1)
Quarter: 2023Q4

REPORT INFORMATION
  Report Type: Spontaneous
  Country: CN (occurrence: CN)
  Receive Date: 20231031
  Receipt Date: 20231031
  Transmission Date: 20240110
  Serious: Yes (Life-Threatening, Hospitalization)
  Sender: FDA-Public Use
  Company Number: CN-Merck Healthcare KGaA-2023483316

PATIENT
  Age: 68 Year
  Sex: Male

DRUGS (1)
  1. ERBITUX [Suspect]
     Active Substance: CETUXIMAB
     Indication: Metastases to liver
     Dosage: 0.8 G, 2/M
     Route: 041
     Dates: start: 20230909, end: 20230909

REACTIONS (4)
  - Seizure [Recovering/Resolving]
  - Cold sweat [Recovering/Resolving]
  - Feeling cold [Recovering/Resolving]
  - Hypotension [Recovering/Resolving]

NARRATIVE: CASE EVENT DATE: 20230911
